FAERS Safety Report 18244231 (Version 1)
Quarter: 2020Q3

REPORT INFORMATION
  Report Type: Spontaneous
  Country: US (occurrence: US)
  Receive Date: 20200908
  Receipt Date: 20200908
  Transmission Date: 20201103
  Serious: No
  Sender: FDA-Public Use
  Company Number: US-PFIZER INC-2019414235

PATIENT
  Age: 49 Year
  Sex: Female
  Weight: 61.7 kg

DRUGS (3)
  1. DILANTIN [Suspect]
     Active Substance: PHENYTOIN
     Indication: IDIOPATHIC GENERALISED EPILEPSY
  2. DILANTIN [Suspect]
     Active Substance: PHENYTOIN
     Indication: MIGRAINE WITHOUT AURA
  3. DILANTIN [Suspect]
     Active Substance: PHENYTOIN
     Indication: SEIZURE
     Dosage: 300 MG, DAILY (1 CAPSULE IN THE MORNING AND 2 CAPSULES AT NIGHT, 100 MG IN THE AM AND 200 MG AT NIGH

REACTIONS (2)
  - Headache [Unknown]
  - Asthma [Unknown]
